FAERS Safety Report 12286354 (Version 2)
Quarter: 2016Q2

REPORT INFORMATION
  Report Type: Spontaneous
  Country: US (occurrence: US)
  Receive Date: 20160420
  Receipt Date: 20160511
  Transmission Date: 20160815
  Serious: No
  Sender: FDA-Public Use
  Company Number: US-PFIZER INC-2016216682

PATIENT
  Age: 61 Year
  Sex: Male
  Weight: 77.11 kg

DRUGS (7)
  1. LYRICA [Suspect]
     Active Substance: PREGABALIN
     Indication: PAIN IN EXTREMITY
     Dosage: 75MG ONE CAPSULE TWICE A DAY
     Route: 048
     Dates: start: 20160414
  2. TYLENOL WITH CODEINE [Suspect]
     Active Substance: ACETAMINOPHEN\CODEINE PHOSPHATE
     Indication: NECK PAIN
     Dosage: ONE TABLET EVERY SIX TO EIGHT HOURS
     Route: 048
     Dates: start: 20160329
  3. TYLENOL WITH CODEINE [Suspect]
     Active Substance: ACETAMINOPHEN\CODEINE PHOSPHATE
     Indication: PAIN IN EXTREMITY
  4. IBUPROFEN. [Concomitant]
     Active Substance: IBUPROFEN
     Indication: INFLAMMATION
     Dosage: 200MG 4 TABLETS ONCE A DAY
     Route: 048
     Dates: start: 201603
  5. TYLENOL WITH CODEINE [Suspect]
     Active Substance: ACETAMINOPHEN\CODEINE PHOSPHATE
     Indication: NERVE INJURY
  6. METOPROLOL. [Concomitant]
     Active Substance: METOPROLOL
     Indication: HYPERTENSION
     Dosage: 50MG ONE TABLET DAILY
     Route: 048
  7. LYRICA [Suspect]
     Active Substance: PREGABALIN
     Indication: NERVE INJURY
     Dosage: 100MG ONE CAPSULE THREE TIMES A DAY
     Route: 048
     Dates: start: 20160329, end: 20160413

REACTIONS (5)
  - Pain [Unknown]
  - Drug ineffective [Recovering/Resolving]
  - Neuralgia [Unknown]
  - Prescribed underdose [Unknown]
  - Neuralgia [Recovering/Resolving]

NARRATIVE: CASE EVENT DATE: 201603
